FAERS Safety Report 4692821-5 (Version None)
Quarter: 2005Q2

REPORT INFORMATION
  Report Type: 
  Country: None (occurrence: None)
  Receive Date: 20050617
  Receipt Date: 20050603
  Transmission Date: 20051028
  Serious: Yes (Hospitalization)
  Sender: FDA-Public Use
  Company Number: 2005SE03285

PATIENT
  Age: 33554 Day
  Sex: Female

DRUGS (2)
  1. ZESTRIL [Suspect]
     Indication: CARDIAC FAILURE
     Route: 048
     Dates: end: 20050501
  2. MODIFENAC [Suspect]
     Route: 048
     Dates: end: 20050501

REACTIONS (2)
  - GASTROINTESTINAL HAEMORRHAGE [None]
  - HAEMOGLOBIN DECREASED [None]
